FAERS Safety Report 11759479 (Version 1)
Quarter: 2015Q4

REPORT INFORMATION
  Report Type: Spontaneous
  Country: US (occurrence: US)
  Receive Date: 20151120
  Receipt Date: 20151120
  Transmission Date: 20160304
  Serious: No
  Sender: FDA-Public Use
  Company Number: US-ELI_LILLY_AND_COMPANY-US201210003509

PATIENT
  Age: 57 Year
  Sex: Female

DRUGS (1)
  1. FORTEO [Suspect]
     Active Substance: TERIPARATIDE
     Indication: OSTEOPOROSIS
     Dosage: 20 UG, QD
     Dates: start: 20121004

REACTIONS (7)
  - Sleep disorder due to a general medical condition [Unknown]
  - Pain in extremity [Unknown]
  - Injection site erythema [Unknown]
  - Feeling abnormal [Unknown]
  - Decreased activity [Unknown]
  - Gait disturbance [Unknown]
  - Injection site bruising [Unknown]

NARRATIVE: CASE EVENT DATE: 20121008
